FAERS Safety Report 11543449 (Version 2)
Quarter: 2015Q4

REPORT INFORMATION
  Report Type: Spontaneous
  Country: JP (occurrence: JP)
  Receive Date: 20150923
  Receipt Date: 20151125
  Transmission Date: 20160304
  Serious: Yes (Hospitalization, Other)
  Sender: FDA-Public Use
  Company Number: JP-ASTRAZENECA-2015SE89968

PATIENT
  Age: 68 Year
  Sex: Male
  Weight: 79 kg

DRUGS (3)
  1. ZOLADEX LA [Suspect]
     Active Substance: GOSERELIN ACETATE
     Indication: PROSTATE CANCER
     Dosage: 10.8 MG, EVERY 12-13 WEEKS
     Route: 058
     Dates: start: 20141224
  2. CASODEX [Suspect]
     Active Substance: BICALUTAMIDE
     Indication: PROSTATE CANCER
     Route: 048
     Dates: start: 20141126, end: 20141224
  3. ZOLADEX LA [Suspect]
     Active Substance: GOSERELIN ACETATE
     Indication: PROSTATE CANCER
     Route: 058
     Dates: start: 20141126

REACTIONS (5)
  - Cough [Unknown]
  - Inflammation [Unknown]
  - Pyrexia [Unknown]
  - Hepatic function abnormal [Recovered/Resolved]
  - Abdominal pain upper [Recovering/Resolving]

NARRATIVE: CASE EVENT DATE: 20141224
